FAERS Safety Report 6359396-6 (Version None)
Quarter: 2009Q3

REPORT INFORMATION
  Report Type: 
  Country: None (occurrence: None)
  Receive Date: 20090917
  Receipt Date: 20070606
  Transmission Date: 20100115
  Serious: Yes (Other)
  Sender: FDA-Public Use
  Company Number: US-ASTRAZENECA-2006UW27917

PATIENT
  Age: 29 Year
  Sex: Female
  Weight: 117 kg

DRUGS (14)
  1. SEROQUEL [Suspect]
     Indication: BIPOLAR DISORDER
     Route: 048
     Dates: start: 20040101
  2. SEROQUEL [Suspect]
     Indication: DEPRESSION
     Route: 048
     Dates: start: 20040101
  3. SEROQUEL [Suspect]
     Dosage: 50 MG TO 600 MG
     Route: 048
     Dates: start: 20040813
  4. SEROQUEL [Suspect]
     Dosage: 50 MG TO 600 MG
     Route: 048
     Dates: start: 20040813
  5. LITHIUM CARBONATE [Concomitant]
     Indication: BIPOLAR DISORDER
     Dosage: 300 MG TO 1200 MG
     Dates: start: 20040813
  6. TRAZODONE [Concomitant]
     Indication: SLEEP DISORDER
     Dosage: 50 MG TO 100 MG
     Dates: start: 20030424
  7. HYDROCODONE BITARTRATE AND ACETAMINOPHEN [Concomitant]
     Indication: PAIN
     Dosage: 5/500 TABLET DISPENSED
     Dates: start: 20010625
  8. NAPROSYN [Concomitant]
     Dosage: 500 MG TO 1100 MG
     Route: 048
     Dates: start: 20040916
  9. VALIUM [Concomitant]
     Indication: ANXIETY
     Route: 048
     Dates: start: 20060101
  10. VALIUM [Concomitant]
     Indication: BIPOLAR DISORDER
     Route: 048
     Dates: start: 20060101
  11. IBUPROFEN [Concomitant]
     Route: 048
     Dates: start: 20010504
  12. PREVACID [Concomitant]
     Dosage: 30 MG CAPSULE DISPENSED
     Dates: start: 20020219
  13. ZANTAC [Concomitant]
     Indication: DUODENAL ULCER
     Dates: start: 19980101
  14. LEXAPRO [Concomitant]
     Indication: DEPRESSION
     Dates: start: 20040813

REACTIONS (4)
  - DRUG EXPOSURE DURING PREGNANCY [None]
  - PANCREATITIS [None]
  - PANCREATITIS ACUTE [None]
  - PANCREATITIS CHRONIC [None]
